FAERS Safety Report 6143514-9 (Version None)
Quarter: 2009Q2

REPORT INFORMATION
  Report Type: 
  Country: None (occurrence: None)
  Receive Date: 20090401
  Receipt Date: 20090318
  Transmission Date: 20091009
  Serious: Yes (Hospitalization)
  Sender: FDA-Public Use
  Company Number: 2009PV037499

PATIENT
  Age: 79 Year
  Sex: Male

DRUGS (1)
  1. SYMLIN [Suspect]
     Indication: TYPE 2 DIABETES MELLITUS
     Dosage: 120 UNITS; BID; SC
     Route: 058
     Dates: start: 20080229

REACTIONS (1)
  - PANCREATIC CARCINOMA [None]
